FAERS Safety Report 20830245 (Version 2)
Quarter: 2022Q3

REPORT INFORMATION
  Report Type: Report from Study
  Country: CO (occurrence: CO)
  Receive Date: 20220514
  Receipt Date: 20220824
  Transmission Date: 20221027
  Serious: Yes (Other)
  Sender: FDA-Public Use
  Company Number: CO-ABBVIE-22K-036-4390812-00

PATIENT
  Sex: Female
  Weight: 60 kg

DRUGS (3)
  1. HUMIRA [Suspect]
     Active Substance: ADALIMUMAB
     Indication: Rheumatoid arthritis
     Route: 058
     Dates: start: 20100309
  2. HUMIRA [Suspect]
     Active Substance: ADALIMUMAB
     Indication: Rheumatoid arthritis
     Route: 058
     Dates: end: 20220628
  3. ABATACEPT [Suspect]
     Active Substance: ABATACEPT
     Indication: Product used for unknown indication
     Route: 042
     Dates: start: 202207

REACTIONS (27)
  - Varicose vein [Recovered/Resolved]
  - Foot deformity [Recovered/Resolved]
  - Synovial cyst [Recovered/Resolved]
  - Chondropathy [Recovered/Resolved]
  - Tonsillar disorder [Recovered/Resolved]
  - Synovial cyst [Not Recovered/Not Resolved]
  - Foot deformity [Not Recovered/Not Resolved]
  - Gait disturbance [Not Recovered/Not Resolved]
  - Varicose vein [Recovering/Resolving]
  - Breath odour [Recovered/Resolved]
  - Joint swelling [Not Recovered/Not Resolved]
  - Mobility decreased [Not Recovered/Not Resolved]
  - Arthritis [Recovered/Resolved]
  - Dry skin [Recovered/Resolved]
  - Musculoskeletal disorder [Recovered/Resolved]
  - Dizziness [Recovered/Resolved]
  - Anaesthesia [Unknown]
  - Synovitis [Not Recovered/Not Resolved]
  - Pruritus allergic [Recovered/Resolved]
  - Arthritis [Not Recovered/Not Resolved]
  - Migraine [Recovering/Resolving]
  - Pain in extremity [Not Recovered/Not Resolved]
  - Arthralgia [Recovered/Resolved]
  - Headache [Not Recovered/Not Resolved]
  - Therapeutic product effect decreased [Not Recovered/Not Resolved]
  - Rash [Recovered/Resolved]
  - Influenza [Recovered/Resolved]

NARRATIVE: CASE EVENT DATE: 20100101
